FAERS Safety Report 6496359-4 (Version None)
Quarter: 2009Q4

REPORT INFORMATION
  Report Type: 
  Country: None (occurrence: None)
  Receive Date: 20091214
  Receipt Date: 20091209
  Transmission Date: 20100525
  Serious: Yes (Hospitalization)
  Sender: FDA-Public Use
  Company Number: US-GILEAD-2009-0025910

PATIENT
  Sex: Female

DRUGS (20)
  1. LETAIRIS [Suspect]
     Indication: COR PULMONALE CHRONIC
     Route: 048
     Dates: start: 20090901
  2. NORVASC [Concomitant]
  3. AMLODIPINE BESYLATE [Concomitant]
  4. FUROSEMIDE [Concomitant]
  5. METOLAZONE [Concomitant]
  6. ASPIR-81 [Concomitant]
  7. ADVAIR DISKUS 100/50 [Concomitant]
  8. ALBUTEROL [Concomitant]
  9. BACTRIM [Concomitant]
  10. CLINDAMYCIN [Concomitant]
  11. ZYRTEC-D 12 HOUR [Concomitant]
  12. KEFLEX [Concomitant]
  13. SKELAXIN [Concomitant]
  14. ASTELIN [Concomitant]
  15. PAROXETINE ER [Concomitant]
  16. DOXYCYCLINE [Concomitant]
  17. CELEBREX [Concomitant]
  18. NEXIUM [Concomitant]
  19. KLOR-CON M20 [Concomitant]
  20. POTASSIUM [Concomitant]

REACTIONS (2)
  - OEDEMA [None]
  - TRANSFUSION [None]
